FAERS Safety Report 13139465 (Version 1)
Quarter: 2017Q1

REPORT INFORMATION
  Report Type: Spontaneous
  Country: PL (occurrence: PL)
  Receive Date: 20170123
  Receipt Date: 20170123
  Transmission Date: 20170428
  Serious: Yes (Other)
  Sender: FDA-Public Use
  Company Number: PL-TEVA-730198ISR

PATIENT
  Age: 37 Year
  Sex: Female

DRUGS (1)
  1. ZOLMILES [Suspect]
     Active Substance: ZOLMITRIPTAN
     Indication: MIGRAINE
     Dates: start: 2013

REACTIONS (4)
  - Bone pain [Unknown]
  - Myalgia [Unknown]
  - Autoimmune disorder [Unknown]
  - Pyrexia [Unknown]

NARRATIVE: CASE EVENT DATE: 2015
